FAERS Safety Report 9287617 (Version 1)
Quarter: 2013Q2

REPORT INFORMATION
  Report Type: Spontaneous
  Country: US (occurrence: US)
  Receive Date: 20130514
  Receipt Date: 20130514
  Transmission Date: 20140414
  Serious: Yes (Hospitalization, Other)
  Sender: FDA-Public Use
  Company Number: US-AMGEN-USASP2013031976

PATIENT
  Age: 70 Year
  Sex: Female

DRUGS (10)
  1. ARANESP [Suspect]
     Indication: MYELODYSPLASTIC SYNDROME
  2. ALLOPURINOL [Concomitant]
  3. BISOPROLOL [Concomitant]
  4. DEPAKOTE [Concomitant]
  5. HYDROCODONE [Concomitant]
     Dosage: 5/500 TWICE DAILY
  6. KEPPRA [Concomitant]
     Dosage: 100 MG, UNK
  7. CALCIUM [Concomitant]
  8. VITAMINS                           /00067501/ [Concomitant]
  9. NEURONTIN [Concomitant]
  10. DITROPAN [Concomitant]

REACTIONS (6)
  - Splenic injury [Unknown]
  - Subarachnoid haemorrhage [Unknown]
  - Coma [Unknown]
  - Haemoglobin decreased [Unknown]
  - Convulsion [Unknown]
  - Fall [Unknown]
